FAERS Safety Report 5087571-X (Version None)
Quarter: 2006Q3

REPORT INFORMATION
  Report Type: 
  Country: None (occurrence: None)
  Receive Date: 20060824
  Receipt Date: 20060823
  Transmission Date: 20061208
  Serious: Yes (Death)
  Sender: FDA-Public Use
  Company Number: PHBS2006SG12615

PATIENT

DRUGS (1)
  1. CYCLOSPORINE [Suspect]
     Route: 065

REACTIONS (1)
  - PANCREATITIS [None]
